FAERS Safety Report 8520514-2 (Version None)
Quarter: 2012Q3

REPORT INFORMATION
  Report Type: 
  Country: None (occurrence: None)
  Receive Date: 20120719
  Receipt Date: 20120709
  Transmission Date: 20120928
  Serious: No
  Sender: FDA-Public Use
  Company Number: US-B.I. PHARMACEUTICALS,INC./RIDGEFIELD-2012-BP-15255BP

PATIENT
  Age: 7 Decade
  Sex: Female

DRUGS (3)
  1. MEDICATIONS NOT FURTHER SPECIFIED [Concomitant]
  2. PRADAXA [Suspect]
     Dosage: 150 MG
     Route: 048
  3. PRADAXA [Suspect]
     Indication: ATRIAL FIBRILLATION
     Dosage: 300 MG
     Route: 048
     Dates: start: 20120201, end: 20120501

REACTIONS (1)
  - OEDEMA PERIPHERAL [None]
